FAERS Safety Report 6121653-6 (Version None)
Quarter: 2009Q1

REPORT INFORMATION
  Report Type: 
  Country: None (occurrence: None)
  Receive Date: 20090317
  Receipt Date: 20090310
  Transmission Date: 20090719
  Serious: Yes (Death, Disabling, Other)
  Sender: FDA-Public Use
  Company Number: US-WYE-H08539509

PATIENT
  Sex: Female

DRUGS (4)
  1. PREMPRO [Suspect]
  2. ESTRADERM [Suspect]
  3. PROVERA [Suspect]
  4. PREMARIN [Suspect]

REACTIONS (1)
  - CEREBROVASCULAR ACCIDENT [None]
